FAERS Safety Report 8799371 (Version 1)
Quarter: 2012Q4

REPORT INFORMATION
  Report Type: 
  Country: US (occurrence: US)
  Receive Date: 20120920
  Receipt Date: 20120920
  Transmission Date: 20130627
  Serious: No
  Sender: FDA-Public Use
  Company Number: US-009507513-1209USA004332

PATIENT
  Sex: Female

DRUGS (11)
  1. JANUMET [Suspect]
     Indication: DIABETES MELLITUS
     Dosage: 50/1000, mg, bid
     Route: 048
  2. SIMVASTATIN [Concomitant]
  3. MELOXICAM [Concomitant]
     Dosage: 7.5 mg, UNK
  4. CITALOPRAM [Concomitant]
     Dosage: 40 mg, UNK
  5. CLONAZEPAM [Concomitant]
  6. TRAZODONE HYDROCHLORIDE [Concomitant]
  7. GABAPENTIN [Concomitant]
  8. LEVOTHYROXINE SODIUM [Concomitant]
  9. GLIMEPIRIDE [Concomitant]
  10. LOSARTAN POTASSIUM [Concomitant]
  11. HUMULIN [Concomitant]

REACTIONS (3)
  - Dysphagia [Not Recovered/Not Resolved]
  - Foreign body [Not Recovered/Not Resolved]
  - Wrong technique in drug usage process [Unknown]
